FAERS Safety Report 12167342 (Version 4)
Quarter: 2016Q3

REPORT INFORMATION
  Report Type: Spontaneous
  Country: US (occurrence: US)
  Receive Date: 20160310
  Receipt Date: 20160712
  Transmission Date: 20161109
  Serious: Yes (Hospitalization, Other)
  Sender: FDA-Public Use
  Company Number: US-GLAXOSMITHKLINE-US2016033309

PATIENT
  Age: 82 Year
  Sex: Male

DRUGS (8)
  1. GLIMEPIRIDE. [Concomitant]
     Active Substance: GLIMEPIRIDE
  2. ADVAIR DISKUS [Suspect]
     Active Substance: FLUTICASONE PROPIONATE\SALMETEROL XINAFOATE
     Indication: ASTHMA
     Dosage: 1 PUFF(S), BID
     Route: 055
     Dates: start: 2006
  3. ADVAIR DISKUS [Suspect]
     Active Substance: FLUTICASONE PROPIONATE\SALMETEROL XINAFOATE
     Dosage: 100/50 UG, 1 PUFF(S), BID
     Route: 055
  4. FLUTICASONE PROPIONATE. [Concomitant]
     Active Substance: FLUTICASONE PROPIONATE
  5. OXYBUTYNIN [Concomitant]
     Active Substance: OXYBUTYNIN
  6. LOSARTAN. [Concomitant]
     Active Substance: LOSARTAN
  7. MEMANTINE. [Concomitant]
     Active Substance: MEMANTINE
  8. ASPIRIN (BABY) [Concomitant]
     Active Substance: ASPIRIN

REACTIONS (11)
  - Incontinence [Unknown]
  - Muscular weakness [Unknown]
  - Dehydration [Recovered/Resolved]
  - Balance disorder [Unknown]
  - Road traffic accident [Recovered/Resolved]
  - Gait disturbance [Unknown]
  - Inappropriate schedule of drug administration [Unknown]
  - Transient ischaemic attack [Recovered/Resolved with Sequelae]
  - Cerebrovascular accident [Recovered/Resolved with Sequelae]
  - Pneumonia [Recovered/Resolved]
  - Pyrexia [Recovered/Resolved]

NARRATIVE: CASE EVENT DATE: 2012
